FAERS Safety Report 19706691 (Version 1)
Quarter: 2021Q3

REPORT INFORMATION
  Report Type: Spontaneous
  Country: US (occurrence: US)
  Receive Date: 20210817
  Receipt Date: 20210817
  Transmission Date: 20211014
  Serious: Yes (Other)
  Sender: FDA-Public Use
  Company Number: US-LUPIN PHARMACEUTICALS INC.-2021-14820

PATIENT
  Age: 70 Year
  Sex: Male

DRUGS (6)
  1. CEFTRIAXONE. [Suspect]
     Active Substance: CEFTRIAXONE
     Indication: SKIN TEST
     Dosage: 2.5 MILLIGRAM PER MILLILITRE
     Route: 065
  2. PENICILLIN [Suspect]
     Active Substance: PENICILLIN
     Indication: SKIN TEST
     Dosage: 10000 INTERNATIONAL UNIT PER MILLILITRE
     Route: 065
  3. AMPICILLIN [Suspect]
     Active Substance: AMPICILLIN
     Indication: SKIN TEST
     Dosage: 25 MILLIGRAM PER MILLILITRE
     Route: 065
  4. CEFUROXIME. [Suspect]
     Active Substance: CEFUROXIME
     Indication: PRODUCT USED FOR UNKNOWN INDICATION
     Dosage: UNK
     Route: 065
  5. CEFAZOLINE [Suspect]
     Active Substance: CEFAZOLIN SODIUM
     Indication: SKIN TEST
     Dosage: 1 MILLIGRAM PER MILLILITRE
     Route: 065
  6. FLUCLOXACILLIN [Suspect]
     Active Substance: FLUCLOXACILLIN
     Indication: SKIN TEST
     Dosage: 2MG/ML, UNK
     Route: 065

REACTIONS (2)
  - Type I hypersensitivity [Unknown]
  - Anaphylactic reaction [Unknown]
